FAERS Safety Report 7743094-8 (Version None)
Quarter: 2011Q3

REPORT INFORMATION
  Report Type: 
  Country: None (occurrence: None)
  Receive Date: 20110912
  Receipt Date: 20110906
  Transmission Date: 20111222
  Serious: Yes (Hospitalization)
  Sender: FDA-Public Use
  Company Number: FR-ROCHE-795138

PATIENT
  Sex: Male

DRUGS (2)
  1. INTERFERON ALFA-2A [Concomitant]
  2. AVASTIN [Suspect]
     Dosage: FORM: INFUSION. DOSE: 25MG/ML.
     Route: 042
     Dates: start: 20110101, end: 20110701

REACTIONS (1)
  - PNEUMOTHORAX [None]
